FAERS Safety Report 15315102 (Version 6)
Quarter: 2019Q2

REPORT INFORMATION
  Report Type: Spontaneous
  Country: US (occurrence: US)
  Receive Date: 20180824
  Receipt Date: 20190424
  Transmission Date: 20190711
  Serious: Yes (Other)
  Sender: FDA-Public Use
  Company Number: US-GLAXOSMITHKLINE-US2018GSK152820

PATIENT
  Sex: Male

DRUGS (4)
  1. PREVACID [Suspect]
     Active Substance: LANSOPRAZOLE
     Indication: BILIARY COLIC
  2. PREVACID [Suspect]
     Active Substance: LANSOPRAZOLE
     Indication: DYSPEPSIA
     Dosage: 30 MG, QD
     Route: 048
  3. PREVACID [Suspect]
     Active Substance: LANSOPRAZOLE
     Indication: DYSPEPSIA
     Dosage: 15 MG, UNK
     Route: 065
  4. LANSOPRAZOLE. [Suspect]
     Active Substance: LANSOPRAZOLE
     Indication: PRODUCT USED FOR UNKNOWN INDICATION
     Dosage: 30 MG, UNK
     Route: 048

REACTIONS (15)
  - Renal failure [Unknown]
  - Renal cyst [Unknown]
  - Hypertensive nephropathy [Unknown]
  - Chronic kidney disease [Unknown]
  - Renal atrophy [Unknown]
  - Nephropathy [Unknown]
  - Proteinuria [Unknown]
  - Single functional kidney [Unknown]
  - Renal impairment [Unknown]
  - Acute kidney injury [Unknown]
  - Azotaemia [Unknown]
  - Blood creatinine increased [Unknown]
  - Renal artery stenosis [Unknown]
  - Renal tubular necrosis [Unknown]
  - Kidney small [Unknown]
